FAERS Safety Report 4788742-X (Version None)
Quarter: 2005Q4

REPORT INFORMATION
  Report Type: 
  Country: None (occurrence: None)
  Receive Date: 20051003
  Receipt Date: 20041112
  Transmission Date: 20060501
  Serious: Yes (Other)
  Sender: FDA-Public Use
  Company Number: US-JNJFOC-20041008614

PATIENT
  Age: 15 Year
  Sex: Male
  Weight: 102.0593 kg

DRUGS (3)
  1. CONCERTA [Suspect]
     Indication: ATTENTION DEFICIT/HYPERACTIVITY DISORDER
     Dosage: ORAL; 108 MG, 1 IN 1 DAY, ORAL; 54 MG, 1 IN 1 DAY, ORAL
     Route: 048
     Dates: start: 20001001
  2. CONCERTA [Suspect]
     Indication: ATTENTION DEFICIT/HYPERACTIVITY DISORDER
     Dosage: ORAL; 108 MG, 1 IN 1 DAY, ORAL; 54 MG, 1 IN 1 DAY, ORAL
     Route: 048
     Dates: start: 20040101
  3. CONCERTA [Suspect]
     Indication: ATTENTION DEFICIT/HYPERACTIVITY DISORDER
     Dosage: ORAL; 108 MG, 1 IN 1 DAY, ORAL; 54 MG, 1 IN 1 DAY, ORAL
     Route: 048
     Dates: start: 20040201

REACTIONS (2)
  - BLOOD PRESSURE INCREASED [None]
  - PRESCRIBED OVERDOSE [None]
